FAERS Safety Report 7806213-0 (Version None)
Quarter: 2011Q4

REPORT INFORMATION
  Report Type: 
  Country: None (occurrence: None)
  Receive Date: 20111011
  Receipt Date: 20111007
  Transmission Date: 20120403
  Serious: No
  Sender: FDA-Public Use
  Company Number: US-TEVA-304264USA

PATIENT
  Sex: Female
  Weight: 44.946 kg

DRUGS (2)
  1. AZILECT [Suspect]
     Indication: PARKINSON'S DISEASE
     Dosage: 1 MILLIGRAM;
  2. SINEMET [Concomitant]

REACTIONS (1)
  - URINARY TRACT INFECTION [None]
